FAERS Safety Report 12896171 (Version 2)
Quarter: 2016Q4

REPORT INFORMATION
  Report Type: Spontaneous
  Country: US (occurrence: US)
  Receive Date: 20161031
  Receipt Date: 20161110
  Transmission Date: 20170207
  Serious: No
  Sender: FDA-Public Use
  Company Number: US-JAZZ-2016-US-015965

PATIENT
  Age: 65 Year
  Sex: Male

DRUGS (13)
  1. DHEA [Concomitant]
     Active Substance: PRASTERONE
  2. XYREM [Suspect]
     Active Substance: SODIUM OXYBATE
     Dosage: 0.5 G, SECOND DOSE
     Route: 048
     Dates: start: 201608
  3. VITAMIN D3 [Concomitant]
     Active Substance: CHOLECALCIFEROL
  4. VITAMIN E [Concomitant]
     Active Substance: .ALPHA.-TOCOPHEROL
  5. SELENIUM [Concomitant]
     Active Substance: SELENIUM
  6. XYREM [Suspect]
     Active Substance: SODIUM OXYBATE
     Indication: NARCOLEPSY
     Dosage: 1.25 G, BID
     Route: 048
     Dates: start: 201608, end: 201608
  7. VITAMIN B COMPLEX [Concomitant]
     Active Substance: CYANOCOBALAMIN\DEXPANTHENOL\NIACINAMIDE\PYRIDOXINE HYDROCHLORIDE\RIBOFLAVIN 5^-PHOSPHATE SODIUM\THIAMINE HYDROCHLORIDE\VITAMIN B COMPLEX
  8. CALCIUM MAGNESIUM [Concomitant]
     Active Substance: CALCIUM\MAGNESIUM
  9. XYREM [Suspect]
     Active Substance: SODIUM OXYBATE
     Dosage: 1.75 G, FIRST DOSE
     Route: 048
     Dates: start: 201608
  10. VITAMIN C [Concomitant]
     Active Substance: ASCORBIC ACID
  11. ADVIL [Concomitant]
     Active Substance: IBUPROFEN
  12. FOLIC ACID. [Concomitant]
     Active Substance: FOLIC ACID
  13. MULTIVITAMIN [Concomitant]
     Active Substance: VITAMINS

REACTIONS (1)
  - Somnolence [Unknown]

NARRATIVE: CASE EVENT DATE: 201608
